FAERS Safety Report 6551141-4 (Version None)
Quarter: 2010Q1

REPORT INFORMATION
  Report Type: 
  Country: None (occurrence: None)
  Receive Date: 20100121
  Receipt Date: 20100111
  Transmission Date: 20100710
  Serious: Yes (Other)
  Sender: FDA-Public Use
  Company Number: GB-1180440

PATIENT
  Age: 50 Year
  Sex: Female

DRUGS (14)
  1. BSS [Suspect]
     Indication: EYE IRRIGATION
     Dosage: 500 ML, INTRAOCULAR
     Route: 031
     Dates: start: 20070530, end: 20070530
  2. BSS [Suspect]
     Indication: PREOPERATIVE CARE
     Dosage: 500 ML, INTRAOCULAR
     Route: 031
     Dates: start: 20070530, end: 20070530
  3. EPINEPHRINE [Suspect]
     Indication: EYE IRRIGATION
     Dosage: 0.3 ML, OPHTHALMIC
     Route: 047
     Dates: start: 20070530, end: 20070530
  4. BETAMETHASONE [Suspect]
     Indication: POSTOPERATIVE CARE
     Dosage: OPTHALMIC
     Route: 047
     Dates: start: 20070530, end: 20070530
  5. CYCLOPENTOLATE (CYCLOPENTOLATE HYDROCHLORIDE) 1% [Suspect]
     Indication: PREOPERATIVE CARE
     Dosage: 1 DF 1/1 TOTAL, INTRAOCULAR
     Route: 031
     Dates: start: 20070530, end: 20070530
  6. HYALURONATE SODIUM (HYALURONATE SODIUM) [Suspect]
     Indication: PERIOPERATIVE ANALGESIA
     Dosage: OPHTHALMIC
     Route: 047
     Dates: start: 20070530, end: 20070530
  7. LIDOCAINE 1% [Suspect]
     Indication: ANAESTHESIA
     Dosage: 1 DF, OPHTHALMIC
     Route: 047
     Dates: start: 20070530, end: 20070530
  8. LIDOCAINE 1% [Suspect]
     Indication: CATARACT OPERATION
     Dosage: 1 DF, OPHTHALMIC
     Route: 047
     Dates: start: 20070530, end: 20070530
  9. NEOMYCIN [Suspect]
     Indication: POSTOPERATIVE CARE
     Dosage: OPHTHALMIC
     Route: 047
     Dates: start: 20070530, end: 20070530
  10. OCUFEN [Suspect]
     Indication: PREOPERATIVE CARE
     Dosage: OPHTHALMIC
     Route: 047
     Dates: start: 20070530, end: 20070530
  11. PHENYLEPHRINE (PHENYLEPHRINE) 2.5 % [Suspect]
     Indication: CATARACT OPERATION
     Dosage: 1 DF 1/1 TOTAL, OPHTHALMIC
     Route: 047
     Dates: start: 20070530, end: 20070530
  12. POVIDONE IODINE [Suspect]
     Indication: CATARACT OPERATION
     Dosage: OPHTHALMIC
     Route: 047
     Dates: start: 20070530, end: 20070530
  13. PROXYMETACAINE (PROXYMETACAINE) [Suspect]
     Indication: PERIOPERATIVE ANALGESIA
     Dosage: OPHTHALMIC
     Route: 047
     Dates: start: 20070530, end: 20070530
  14. VANCOMYCIN [Suspect]
     Indication: EYE IRRIGATION
     Dosage: 10 MG, OPHTHALMIC
     Route: 047
     Dates: start: 20070530, end: 20070530

REACTIONS (1)
  - TOXIC ANTERIOR SEGMENT SYNDROME [None]
